FAERS Safety Report 10228564 (Version 1)
Quarter: 2014Q2

REPORT INFORMATION
  Report Type: Spontaneous
  Country: CN (occurrence: CN)
  Receive Date: 20140610
  Receipt Date: 20140610
  Transmission Date: 20141212
  Serious: Yes (Other)
  Sender: FDA-Public Use
  Company Number: CN-ASTRAZENECA-2014SE40392

PATIENT
  Age: 8333 Day
  Sex: Female
  Weight: 48 kg

DRUGS (1)
  1. SEROQUEL [Suspect]
     Indication: SCHIZOPHRENIA, UNDIFFERENTIATED TYPE
     Route: 048
     Dates: start: 20131002, end: 20131206

REACTIONS (1)
  - Hepatic function abnormal [Unknown]
